FAERS Safety Report 6955596-2 (Version None)
Quarter: 2010Q3

REPORT INFORMATION
  Report Type: 
  Country: None (occurrence: None)
  Receive Date: 20100826
  Receipt Date: 20100826
  Transmission Date: 20110219
  Serious: Yes (Hospitalization)
  Sender: FDA-Public Use
  Company Number: None

PATIENT
  Sex: Male
  Weight: 71.3 kg

DRUGS (2)
  1. DOCETAXEL [Suspect]
     Indication: NON-SMALL CELL LUNG CANCER
     Dosage: 75MG/M2, Q21 DAYS, IV
     Route: 042
     Dates: start: 20100610
  2. APRICOXIB/PLACEBO [Suspect]
     Indication: NON-SMALL CELL LUNG CANCER
     Dosage: 300MG, DAILY PO
     Route: 048
     Dates: start: 20100610

REACTIONS (1)
  - FEBRILE NEUTROPENIA [None]
